FAERS Safety Report 24431415 (Version 1)
Quarter: 2024Q4

REPORT INFORMATION
  Report Type: Spontaneous
  Country: US (occurrence: US)
  Receive Date: 20241014
  Receipt Date: 20241014
  Transmission Date: 20250115
  Serious: Yes (Other)
  Sender: AUROBINDO
  Company Number: US-MLMSERVICE-20240923-PI202728-00217-1

PATIENT
  Age: 73 Year
  Sex: Female

DRUGS (28)
  1. METFORMIN [Suspect]
     Active Substance: METFORMIN HYDROCHLORIDE
     Indication: Hyperglycaemia
     Dosage: UNK
     Route: 065
  2. CYCLOPHOSPHAMIDE [Suspect]
     Active Substance: CYCLOPHOSPHAMIDE
     Indication: Breast cancer
     Dosage: UNK
     Route: 065
  3. DOCETAXEL [Suspect]
     Active Substance: DOCETAXEL
     Indication: Breast cancer
     Dosage: UNK
     Route: 065
  4. INSULIN NOS [Concomitant]
     Active Substance: INSULIN NOS
     Indication: Hyperglycaemia
     Dosage: UNK
     Route: 042
  5. FASLODEX [Concomitant]
     Active Substance: FULVESTRANT
     Indication: Invasive ductal breast carcinoma
     Dosage: UNK ONCE EVERY 4 WEEKS
     Route: 065
  6. FASLODEX [Concomitant]
     Active Substance: FULVESTRANT
     Indication: Metastases to liver
  7. FASLODEX [Concomitant]
     Active Substance: FULVESTRANT
     Indication: Breast cancer metastatic
  8. FASLODEX [Concomitant]
     Active Substance: FULVESTRANT
     Indication: HER2 negative breast cancer
  9. FASLODEX [Concomitant]
     Active Substance: FULVESTRANT
     Indication: Hormone receptor positive breast cancer
  10. FASLODEX [Concomitant]
     Active Substance: FULVESTRANT
     Indication: Metastases to spine
  11. FASLODEX [Concomitant]
     Active Substance: FULVESTRANT
     Indication: Metastases to lung
  12. FASLODEX [Concomitant]
     Active Substance: FULVESTRANT
     Indication: Hormone receptor positive breast cancer
  13. ZOMETA [Concomitant]
     Active Substance: ZOLEDRONIC ACID
     Indication: Hormone receptor positive breast cancer
     Dosage: UNK (ONCE EVERY 4 WEEKS)
     Route: 065
  14. ZOMETA [Concomitant]
     Active Substance: ZOLEDRONIC ACID
     Indication: Invasive ductal breast carcinoma
  15. ZOMETA [Concomitant]
     Active Substance: ZOLEDRONIC ACID
     Indication: Hormone receptor positive breast cancer
  16. ZOMETA [Concomitant]
     Active Substance: ZOLEDRONIC ACID
     Indication: Breast cancer metastatic
  17. ZOMETA [Concomitant]
     Active Substance: ZOLEDRONIC ACID
     Indication: Metastases to lung
  18. ZOMETA [Concomitant]
     Active Substance: ZOLEDRONIC ACID
     Indication: Metastases to spine
  19. ZOMETA [Concomitant]
     Active Substance: ZOLEDRONIC ACID
     Indication: HER2 negative breast cancer
  20. ZOMETA [Concomitant]
     Active Substance: ZOLEDRONIC ACID
     Indication: Metastases to liver
  21. PIQRAY [Concomitant]
     Active Substance: ALPELISIB
     Indication: Invasive ductal breast carcinoma
     Dosage: 300 MILLIGRAM, ONCE A DAY
     Route: 065
  22. PIQRAY [Concomitant]
     Active Substance: ALPELISIB
     Indication: Metastases to lung
  23. PIQRAY [Concomitant]
     Active Substance: ALPELISIB
     Indication: Hormone receptor positive breast cancer
  24. PIQRAY [Concomitant]
     Active Substance: ALPELISIB
     Indication: Hormone receptor positive breast cancer
  25. PIQRAY [Concomitant]
     Active Substance: ALPELISIB
     Indication: Metastases to liver
  26. PIQRAY [Concomitant]
     Active Substance: ALPELISIB
     Indication: Breast cancer metastatic
  27. PIQRAY [Concomitant]
     Active Substance: ALPELISIB
     Indication: HER2 negative breast cancer
  28. PIQRAY [Concomitant]
     Active Substance: ALPELISIB
     Indication: Metastases to spine

REACTIONS (3)
  - Drug ineffective [Unknown]
  - Blood glucose abnormal [Recovered/Resolved]
  - Condition aggravated [Recovered/Resolved]
